FAERS Safety Report 4578487-3 (Version None)
Quarter: 2005Q1

REPORT INFORMATION
  Report Type: 
  Country: None (occurrence: None)
  Receive Date: 20050209
  Receipt Date: 20050128
  Transmission Date: 20050727
  Serious: Yes (Other)
  Sender: FDA-Public Use
  Company Number: 2005022622

PATIENT
  Age: 67 Year
  Sex: Female
  Weight: 67.1324 kg

DRUGS (4)
  1. TIKOSYN [Suspect]
     Indication: ATRIAL FIBRILLATION
     Dosage: (1 IN 1 D), ORAL
     Route: 048
     Dates: start: 20040901
  2. DIGOXIN [Concomitant]
  3. WARFARIN SODIUM [Concomitant]
  4. RAMIPRIL [Concomitant]

REACTIONS (6)
  - DISEASE RECURRENCE [None]
  - HEADACHE [None]
  - INTRACARDIAC THROMBUS [None]
  - NAUSEA [None]
  - RENAL PAIN [None]
  - URINARY TRACT INFECTION [None]
